FAERS Safety Report 9500679 (Version 4)
Quarter: 2013Q4

REPORT INFORMATION
  Report Type: Spontaneous
  Country: DE (occurrence: DE)
  Receive Date: 20130905
  Receipt Date: 20131002
  Transmission Date: 20140711
  Serious: Yes (Death, Hospitalization)
  Sender: FDA-Public Use
  Company Number: DE-EISAI INC-E7389-04072-SPO-DE

PATIENT
  Age: 80 Year
  Sex: Female
  Weight: 57 kg

DRUGS (13)
  1. HALAVEN [Suspect]
     Indication: BREAST CANCER METASTATIC
     Route: 041
     Dates: start: 20130220, end: 20130220
  2. HALAVEN [Suspect]
     Route: 041
     Dates: start: 20130227, end: 20130227
  3. HERCEPTIN [Suspect]
     Indication: BREAST CANCER METASTATIC
     Route: 041
     Dates: start: 200901, end: 20130219
  4. FAUSTAN [Concomitant]
     Indication: NERVOUSNESS
     Route: 048
  5. RAMIPRIL [Concomitant]
     Indication: HYPERTENSION
     Route: 048
     Dates: end: 20130303
  6. CALCIUM/VIT D3 [Concomitant]
     Indication: OSTEOPOROSIS
     Route: 048
     Dates: end: 20130303
  7. IBUPROFEN [Concomitant]
     Indication: PAIN
     Route: 048
     Dates: end: 20130303
  8. TRAMADOL [Concomitant]
     Indication: PAIN
     Route: 048
     Dates: end: 20130303
  9. ZOPICLONE [Concomitant]
     Indication: SLEEP DISORDER
     Route: 048
     Dates: end: 20130303
  10. OMEPRAZOLE [Concomitant]
     Indication: PROPHYLAXIS
     Route: 048
     Dates: end: 20130303
  11. ANTI-DEPRESSANT [Concomitant]
     Dosage: UNKNOWN
     Route: 065
  12. AMLODIPINE [Concomitant]
     Indication: HYPERTENSION
     Route: 048
     Dates: end: 20130303
  13. BISOPROLOL [Concomitant]
     Indication: HYPERTENSION
     Route: 048
     Dates: end: 20130303

REACTIONS (4)
  - Death [Fatal]
  - Cardiac failure [Fatal]
  - Pulmonary oedema [Fatal]
  - Sepsis [Fatal]
